FAERS Safety Report 7383902-6 (Version None)
Quarter: 2011Q1

REPORT INFORMATION
  Report Type: 
  Country: None (occurrence: None)
  Receive Date: 20110330
  Receipt Date: 20110118
  Transmission Date: 20110831
  Serious: No
  Sender: FDA-Public Use
  Company Number: US-MYLANLABS-2011S1001375

PATIENT
  Age: 60 Year
  Sex: Female

DRUGS (1)
  1. RISPERIDONE [Suspect]
     Indication: DEPRESSION
     Route: 048
     Dates: start: 20100101

REACTIONS (1)
  - DROOLING [None]
